FAERS Safety Report 25530141 (Version 2)
Quarter: 2025Q4

REPORT INFORMATION
  Report Type: Spontaneous
  Country: US (occurrence: US)
  Receive Date: 20250708
  Receipt Date: 20251114
  Transmission Date: 20260117
  Serious: Yes (Other)
  Sender: NOVO NORDISK
  Company Number: US-NOVOPROD-907348

PATIENT
  Sex: Female

DRUGS (2)
  1. TRESIBA [Suspect]
     Active Substance: INSULIN DEGLUDEC
     Dosage: 70 IU, BID
  2. TRESIBA [Suspect]
     Active Substance: INSULIN DEGLUDEC
     Indication: Type 2 diabetes mellitus
     Dosage: UNK
     Dates: start: 2020, end: 2021

REACTIONS (7)
  - Neoplasm malignant [Unknown]
  - Coronavirus infection [Unknown]
  - Arterial occlusive disease [Unknown]
  - Renal cyst [Unknown]
  - Intestinal cyst [Unknown]
  - Weight increased [Unknown]
  - Blood glucose decreased [Unknown]

NARRATIVE: CASE EVENT DATE: 20210101
